FAERS Safety Report 22654765 (Version 1)
Quarter: 2023Q2

REPORT INFORMATION
  Report Type: Spontaneous
  Country: US (occurrence: US)
  Receive Date: 20230629
  Receipt Date: 20230629
  Transmission Date: 20230721
  Serious: Yes (Other)
  Sender: FDA-Public Use
  Company Number: US-BAYER-2023A087621

PATIENT

DRUGS (1)
  1. AFRIN ORIGINAL NASAL [Suspect]
     Active Substance: OXYMETAZOLINE HYDROCHLORIDE
     Indication: Nasal congestion
     Dosage: UNK

REACTIONS (2)
  - Drug dependence [None]
  - Sinus operation [None]
